FAERS Safety Report 7850988-1 (Version None)
Quarter: 2011Q4

REPORT INFORMATION
  Report Type: 
  Country: None (occurrence: None)
  Receive Date: 20111024
  Receipt Date: 20111010
  Transmission Date: 20120403
  Serious: Yes (Other)
  Sender: FDA-Public Use
  Company Number: 11-080

PATIENT
  Age: 24 Year
  Sex: Female

DRUGS (3)
  1. DEPOT MEDROXTPROGESTERONE [Concomitant]
  2. CETIRIZINE HCL [Suspect]
     Dosage: 10 MG;QD;
  3. VALACYCLOVIR [Concomitant]

REACTIONS (9)
  - COORDINATION ABNORMAL [None]
  - DYSKINESIA [None]
  - LACERATION [None]
  - GRIMACING [None]
  - DYSTONIA [None]
  - DYSARTHRIA [None]
  - MUSCLE TWITCHING [None]
  - GAIT DISTURBANCE [None]
  - ALCOHOL POISONING [None]
